FAERS Safety Report 9486236 (Version 1)
Quarter: 2013Q3

REPORT INFORMATION
  Report Type: Spontaneous
  Country: US (occurrence: US)
  Receive Date: 20130829
  Receipt Date: 20130829
  Transmission Date: 20140515
  Serious: Yes (Other)
  Sender: FDA-Public Use
  Company Number: US-PFIZER INC-2013248022

PATIENT
  Age: 30 Year
  Sex: Male

DRUGS (6)
  1. ZOLOFT [Suspect]
     Dosage: 100 MG, UNK
  2. BUTRANS [Interacting]
     Dosage: UNK
  3. KEPPRA [Interacting]
     Dosage: 500 MG, UNK
  4. PERCOCET [Interacting]
     Dosage: OXYCODONE HYDROCHLORIDE (10 MG), PARACETAMOL (325 MG)
  5. VALIUM [Interacting]
     Dosage: 5 MG, UNK
  6. TIZANIDINE [Interacting]
     Dosage: 4 MG, UNK

REACTIONS (2)
  - Drug interaction [Unknown]
  - Suicidal ideation [Unknown]
